FAERS Safety Report 12001022 (Version 1)
Quarter: 2016Q1

REPORT INFORMATION
  Report Type: Spontaneous
  Country: ES (occurrence: ES)
  Receive Date: 20160204
  Receipt Date: 20160204
  Transmission Date: 20160526
  Serious: Yes (Other)
  Sender: FDA-Public Use
  Company Number: ES-JNJFOC-20160200981

PATIENT

DRUGS (10)
  1. MESNA. [Suspect]
     Active Substance: MESNA
     Indication: EWING^S SARCOMA
     Dosage: 24 HOUR INFUSION (DAYS 1, 2, 3)
     Route: 065
  2. ETOPOSIDE. [Suspect]
     Active Substance: ETOPOSIDE
     Indication: EWING^S SARCOMA
     Dosage: 6 CYCLES, 2 HOUR INFUSION (DAYS 1, 2, 3)
     Route: 065
  3. CYCLOPHOSPHAMIDE. [Suspect]
     Active Substance: CYCLOPHOSPHAMIDE
     Indication: EWING^S SARCOMA
     Dosage: DAY 1, 8 CYCLES
     Route: 065
  4. GRANULOCYTE COLONY STIMULATING FACTOR [Concomitant]
     Active Substance: GRANULOCYTE COLONY-STIMULATING FACTOR NOS
     Route: 065
  5. IFOSFAMIDE. [Suspect]
     Active Substance: IFOSFAMIDE
     Indication: EWING^S SARCOMA
     Dosage: 6 CYCLES, 1 HOUR INFUSION (DAYS 1, 2, 3)
     Route: 065
  6. DOXORUBICIN [Suspect]
     Active Substance: DOXORUBICIN
     Indication: EWING^S SARCOMA
     Dosage: 6 CYCLES, 4 HOUR INFUSION (DAYS 1, 2, 3)
     Route: 042
  7. MELPHALAN [Suspect]
     Active Substance: MELPHALAN
     Indication: EWING^S SARCOMA
     Route: 065
  8. ACTINOMYCIN D [Suspect]
     Active Substance: DACTINOMYCIN
     Indication: EWING^S SARCOMA
     Dosage: DAYS 1, 2, 8 CYCLES
     Route: 065
  9. BUSULPHAN [Suspect]
     Active Substance: BUSULFAN
     Indication: EWING^S SARCOMA
     Route: 065
  10. VINCRISTINE [Suspect]
     Active Substance: VINCRISTINE
     Indication: EWING^S SARCOMA
     Dosage: 6 CYCLES, DAY 1
     Route: 065

REACTIONS (11)
  - Anaemia [Unknown]
  - Gastrointestinal toxicity [Unknown]
  - Cystitis [Unknown]
  - Off label use [Unknown]
  - Stomatitis [Unknown]
  - Febrile neutropenia [Unknown]
  - Cardiotoxicity [Unknown]
  - Product use issue [Unknown]
  - Neutropenia [Unknown]
  - Neurotoxicity [Unknown]
  - Thrombocytopenia [Unknown]
